FAERS Safety Report 9186768 (Version 1)
Quarter: 2012Q4

REPORT INFORMATION
  Report Type: 
  Country: US (occurrence: US)
  Receive Date: 20121102
  Receipt Date: 20121102
  Transmission Date: 20130627
  Serious: No
  Sender: FDA-Public Use
  Company Number: US-PFIZER INC-2012267323

PATIENT
  Sex: Female

DRUGS (5)
  1. CELEBREX [Suspect]
     Indication: BACK DISORDER
     Dosage: UNK
     Dates: end: 2009
  2. CELEBREX [Suspect]
     Dosage: UNK
     Dates: start: 2009
  3. CORTISONE [Suspect]
     Indication: SPINAL FUSION SURGERY
     Dosage: UNK
     Dates: start: 2001
  4. WARFARIN [Concomitant]
     Indication: ATRIAL FIBRILLATION
     Dosage: UNK
  5. ASPIRIN [Concomitant]
     Indication: ATRIAL FIBRILLATION
     Dosage: UNK

REACTIONS (9)
  - Weight increased [Unknown]
  - Abdominal pain [Unknown]
  - Drug ineffective [Unknown]
  - Gastric disorder [Unknown]
  - Fatigue [Unknown]
  - Dyspnoea [Unknown]
  - Swelling face [Unknown]
  - Hepatic steatosis [Unknown]
  - Pain [Unknown]
